FAERS Safety Report 9745311 (Version 1)
Quarter: 2013Q4

REPORT INFORMATION
  Report Type: Spontaneous
  Country: GB (occurrence: GB)
  Receive Date: 20131211
  Receipt Date: 20131211
  Transmission Date: 20140711
  Serious: Yes (Other)
  Sender: FDA-Public Use
  Company Number: GB-ASTRAZENECA-2013SE89101

PATIENT
  Age: 64 Year
  Sex: Female
  Weight: 59.9 kg

DRUGS (2)
  1. OMEPRAZOLE [Suspect]
     Indication: GASTROOESOPHAGEAL REFLUX DISEASE
     Route: 048
     Dates: start: 20131101, end: 20131106
  2. GAVISCON ADVANCE [Concomitant]

REACTIONS (2)
  - Urine flow decreased [Recovering/Resolving]
  - Abdominal discomfort [Recovered/Resolved]
